FAERS Safety Report 5279191-9 (Version None)
Quarter: 2007Q1

REPORT INFORMATION
  Report Type: 
  Country: None (occurrence: None)
  Receive Date: 20070328
  Receipt Date: 20070322
  Transmission Date: 20070707
  Serious: Yes (Death)
  Sender: FDA-Public Use
  Company Number: HQWYE520322MAR07

PATIENT
  Sex: Male
  Weight: 56 kg

DRUGS (14)
  1. TAZOCIN [Suspect]
     Indication: PYREXIA
     Route: 041
     Dates: start: 20070302, end: 20070305
  2. TAZOCIN [Suspect]
     Indication: PYOTHORAX
  3. GASTER [Concomitant]
     Route: 048
     Dates: start: 20070217, end: 20070304
  4. NITRAZEPAM [Concomitant]
     Route: 048
     Dates: start: 20070215, end: 20070304
  5. MOBIC [Concomitant]
     Route: 048
     Dates: start: 20060426, end: 20070304
  6. CODEINE PHOSPHATE [Concomitant]
     Route: 048
     Dates: start: 20070216, end: 20070304
  7. MECOBALAMIN [Concomitant]
     Dosage: 1500 MCG DAILY
     Route: 048
     Dates: start: 20070217, end: 20070304
  8. DEPAS [Concomitant]
     Route: 048
     Dates: end: 20070304
  9. LACTOBACILLUS ACIDOPHILUS [Concomitant]
     Route: 048
     Dates: start: 20070302, end: 20070304
  10. LOXONIN [Concomitant]
     Route: 048
     Dates: start: 20070221, end: 20070304
  11. MUCOSTA [Concomitant]
     Route: 048
     Dates: start: 20070221, end: 20070304
  12. DALACIN [Suspect]
     Indication: PYREXIA
     Route: 041
     Dates: start: 20070302, end: 20070305
  13. DALACIN [Suspect]
     Indication: PYOTHORAX
  14. FERRUM [Concomitant]
     Route: 048
     Dates: start: 20070217, end: 20070304

REACTIONS (2)
  - ACUTE RESPIRATORY DISTRESS SYNDROME [None]
  - INTERSTITIAL LUNG DISEASE [None]
